FAERS Safety Report 8170423-6 (Version None)
Quarter: 2012Q1

REPORT INFORMATION
  Report Type: 
  Country: None (occurrence: None)
  Receive Date: 20120228
  Receipt Date: 20120215
  Transmission Date: 20120608
  Serious: Yes (Hospitalization, Other)
  Sender: FDA-Public Use
  Company Number: FR-AMGEN-FRASP2012011640

PATIENT
  Age: 76 Year
  Sex: Female

DRUGS (8)
  1. METHOTREXATE [Suspect]
     Indication: RHEUMATOID ARTHRITIS
     Dosage: UNKNOWN
     Route: 048
     Dates: start: 19990101, end: 20110101
  2. HUMIRA [Suspect]
     Indication: RHEUMATOID ARTHRITIS
     Dosage: UNKNOWN
     Route: 058
     Dates: start: 20060501, end: 20070301
  3. ENBREL [Suspect]
     Indication: RHEUMATOID ARTHRITIS
     Dosage: UNKNOWN
     Route: 058
     Dates: start: 20080101
  4. CELECTOL [Concomitant]
     Dosage: UNK
     Route: 048
  5. FOLIC ACID [Concomitant]
     Dosage: UNK
     Route: 048
  6. ACTONEL [Concomitant]
     Dosage: UNK
     Route: 048
  7. VALACYCLOVIR HYDROCHLORIDE [Concomitant]
     Dosage: UNK
     Route: 048
  8. OROCAL                             /00751519/ [Concomitant]
     Dosage: UNK
     Route: 048

REACTIONS (3)
  - MELANOMA RECURRENT [None]
  - MALIGNANT MELANOMA STAGE III [None]
  - LIVER DISORDER [None]
